FAERS Safety Report 19807725 (Version 1)
Quarter: 2021Q3

REPORT INFORMATION
  Report Type: Spontaneous
  Country: US (occurrence: US)
  Receive Date: 20210908
  Receipt Date: 20210908
  Transmission Date: 20211014
  Serious: Yes (Other)
  Sender: FDA-Public Use
  Company Number: None

PATIENT
  Age: 65 Year
  Sex: Female
  Weight: 52.7 kg

DRUGS (1)
  1. KYMRIAH [Suspect]
     Active Substance: TISAGENLECLEUCEL
     Indication: DIFFUSE LARGE B-CELL LYMPHOMA
     Dosage: ?          OTHER FREQUENCY:ONCE;?
     Route: 042
     Dates: start: 20210621, end: 20210621

REACTIONS (5)
  - Tachycardia [None]
  - Diarrhoea [None]
  - Hyponatraemia [None]
  - Neurotoxicity [None]
  - Pyrexia [None]

NARRATIVE: CASE EVENT DATE: 20210624
